FAERS Safety Report 10204917 (Version 2)
Quarter: 2014Q2

REPORT INFORMATION
  Report Type: Spontaneous
  Country: HR (occurrence: HR)
  Receive Date: 20140529
  Receipt Date: 20140605
  Transmission Date: 20141212
  Serious: Yes (Other)
  Sender: FDA-Public Use
  Company Number: HR-TEVA-482610ISR

PATIENT
  Age: 65 Year
  Sex: Male

DRUGS (5)
  1. KLAVOCIN BID TABLETE 1 G [Suspect]
     Indication: PNEUMONIA
     Dosage: 2 GRAM DAILY;
     Route: 048
     Dates: start: 20140203, end: 20140204
  2. TRIAPIN 5 MG/5 MG TABLETE S PRODULJENI [Suspect]
     Indication: HYPERTENSION
     Dosage: 1 DOSAGE FORMS DAILY;
     Route: 048
     Dates: start: 20140203, end: 20140207
  3. EPRI [Concomitant]
     Indication: DYSLIPIDAEMIA
     Dosage: 10 MILLIGRAM DAILY;
     Route: 048
     Dates: start: 20140203
  4. NEBILET PLUS [Concomitant]
     Indication: CARDIAC FAILURE
     Dosage: 1 DOSAGE FORMS DAILY;
     Route: 048
     Dates: start: 20140203
  5. ANDOL 100 [Concomitant]

REACTIONS (3)
  - Angioedema [Recovered/Resolved]
  - Tongue oedema [Recovered/Resolved]
  - Dry mouth [Recovered/Resolved]
